FAERS Safety Report 9437493 (Version 2)
Quarter: 2014Q1

REPORT INFORMATION
  Report Type: Spontaneous
  Country: US (occurrence: US)
  Receive Date: 20130802
  Receipt Date: 20140210
  Transmission Date: 20141002
  Serious: Yes (Other)
  Sender: FDA-Public Use
  Company Number: US-BAYER-2013-093449

PATIENT
  Sex: Female
  Weight: 50 kg

DRUGS (1)
  1. MIRENA [Suspect]
     Indication: CONTRACEPTION
     Dosage: 20 MCG/24HR, CONT
     Route: 015
     Dates: start: 200802, end: 2008

REACTIONS (5)
  - Pelvic inflammatory disease [None]
  - Abdominal pain [None]
  - Urinary tract infection [None]
  - Uterine fibrosis [None]
  - Mental disorder [None]
